FAERS Safety Report 7014332-4 (Version None)
Quarter: 2010Q3

REPORT INFORMATION
  Report Type: 
  Country: None (occurrence: None)
  Receive Date: 20100927
  Receipt Date: 20100923
  Transmission Date: 20110219
  Serious: Yes (Hospitalization, Other)
  Sender: FDA-Public Use
  Company Number: US-ROXANE LABORATORIES, INC.-2010-RO-01268RO

PATIENT
  Age: 13 Year
  Sex: Female

DRUGS (4)
  1. MERCAPTOPURINE [Suspect]
     Indication: CROHN'S DISEASE
  2. BUDESONIDE [Suspect]
     Indication: CROHN'S DISEASE
  3. MESALAMINE [Suspect]
     Indication: CROHN'S DISEASE
  4. OMEPRAZOLE [Suspect]
     Indication: CROHN'S DISEASE

REACTIONS (5)
  - ALOPECIA [None]
  - BONE MARROW FAILURE [None]
  - ESCHERICHIA SEPSIS [None]
  - PANCYTOPENIA [None]
  - UPPER RESPIRATORY TRACT INFECTION [None]
